FAERS Safety Report 4572119-6 (Version None)
Quarter: 2005Q1

REPORT INFORMATION
  Report Type: 
  Country: None (occurrence: None)
  Receive Date: 20050202
  Receipt Date: 20050114
  Transmission Date: 20050727
  Serious: Yes (Death)
  Sender: FDA-Public Use
  Company Number: USA050188413

PATIENT
  Age: 41 Year
  Sex: Female

DRUGS (5)
  1. ZYPREXA [Suspect]
     Indication: SCHIZOAFFECTIVE DISORDER
     Dosage: 35 MG DAY
  2. STRATTERA [Suspect]
     Indication: ATTENTION DEFICIT/HYPERACTIVITY DISORDER
     Dosage: 40 MG/1 DAY
  3. CELEBREX [Concomitant]
  4. ZOLOFT [Concomitant]
  5. PROZAC (FLUDOXETINE HYDROCHLORIDE) [Concomitant]

REACTIONS (3)
  - ATTENTION DEFICIT/HYPERACTIVITY DISORDER [None]
  - COMPLETED SUICIDE [None]
  - DRUG LEVEL INCREASED [None]
